FAERS Safety Report 25199069 (Version 1)
Quarter: 2025Q2

REPORT INFORMATION
  Report Type: Report from Study
  Country: US (occurrence: US)
  Receive Date: 20250415
  Receipt Date: 20250415
  Transmission Date: 20250717
  Serious: Yes (Hospitalization)
  Sender: JAZZ
  Company Number: US-JAZZ PHARMACEUTICALS-JPI-P-023127

PATIENT
  Age: 15 Year
  Sex: Male
  Weight: 104.54 kg

DRUGS (16)
  1. XYREM [Suspect]
     Active Substance: SODIUM OXYBATE
     Indication: Narcolepsy
     Dosage: 2.5 GRAM, BID
     Route: 048
     Dates: start: 20120711
  2. XYREM [Suspect]
     Active Substance: SODIUM OXYBATE
     Dates: start: 2012
  3. XYREM [Suspect]
     Active Substance: SODIUM OXYBATE
     Dosage: 3 GRAM, BID
     Route: 048
     Dates: start: 2012
  4. XYREM [Suspect]
     Active Substance: SODIUM OXYBATE
     Dosage: 3.25 GRAM, BID
     Route: 048
     Dates: start: 2012
  5. XYREM [Suspect]
     Active Substance: SODIUM OXYBATE
     Dosage: 3.5 GRAM, BID
     Route: 048
     Dates: start: 20120815
  6. XYREM [Suspect]
     Active Substance: SODIUM OXYBATE
     Dosage: 3 GRAM, BID
     Route: 048
     Dates: start: 20120821
  7. XYREM [Suspect]
     Active Substance: SODIUM OXYBATE
     Dosage: 4 GRAM, BID
     Route: 048
     Dates: start: 20231017, end: 20240410
  8. IMIPRAMINE [Concomitant]
     Active Substance: IMIPRAMINE
  9. AMBIEN [Concomitant]
     Active Substance: ZOLPIDEM TARTRATE
  10. PROVIGIL [Concomitant]
     Active Substance: MODAFINIL
  11. ABILIFY [Concomitant]
     Active Substance: ARIPIPRAZOLE
     Indication: Product used for unknown indication
  12. STRATTERA [Concomitant]
     Active Substance: ATOMOXETINE HYDROCHLORIDE
     Indication: Product used for unknown indication
  13. BENADRYL ALLERGY [Concomitant]
     Active Substance: DIPHENHYDRAMINE HYDROCHLORIDE
     Indication: Product used for unknown indication
  14. MOTRIN [Concomitant]
     Active Substance: IBUPROFEN
     Indication: Product used for unknown indication
  15. IMMUNE GLOBULIN [Concomitant]
     Indication: Product used for unknown indication
  16. MELATONIN [Concomitant]
     Active Substance: MELATONIN
     Indication: Product used for unknown indication

REACTIONS (20)
  - Hallucination, auditory [Not Recovered/Not Resolved]
  - Hallucination, visual [Not Recovered/Not Resolved]
  - Cataplexy [Not Recovered/Not Resolved]
  - Throat tightness [Not Recovered/Not Resolved]
  - Screaming [Recovered/Resolved]
  - Tic [Not Recovered/Not Resolved]
  - Condition aggravated [Unknown]
  - Sleep paralysis [Unknown]
  - Abnormal dreams [Not Recovered/Not Resolved]
  - Feeling abnormal [Unknown]
  - Retching [Unknown]
  - Dysgeusia [Not Recovered/Not Resolved]
  - Feeling hot [Not Recovered/Not Resolved]
  - Decreased appetite [Recovering/Resolving]
  - Muscle twitching [Not Recovered/Not Resolved]
  - Oropharyngeal pain [Not Recovered/Not Resolved]
  - Dysphagia [Not Recovered/Not Resolved]
  - Insomnia [Recovered/Resolved]
  - Taste disorder [Not Recovered/Not Resolved]
  - Gastrooesophageal reflux disease [Not Recovered/Not Resolved]

NARRATIVE: CASE EVENT DATE: 20120710
